FAERS Safety Report 22907116 (Version 4)
Quarter: 2024Q1

REPORT INFORMATION
  Report Type: Spontaneous
  Country: JP (occurrence: JP)
  Receive Date: 20230905
  Receipt Date: 20240312
  Transmission Date: 20240410
  Serious: Yes (Death, Other)
  Sender: FDA-Public Use
  Company Number: JP-ONO-2023JP022130

PATIENT
  Age: 85 Year
  Sex: Male

DRUGS (1)
  1. OPDIVO [Suspect]
     Active Substance: NIVOLUMAB
     Indication: Non-small cell lung cancer
     Route: 041
     Dates: start: 202307

REACTIONS (7)
  - Interstitial lung disease [Recovering/Resolving]
  - Platelet count decreased [Not Recovered/Not Resolved]
  - Prescribed underdose [Unknown]
  - Myocardial ischaemia [Unknown]
  - Cytokine release syndrome [Fatal]
  - Immune-mediated enterocolitis [Fatal]
  - Immune-mediated hypothyroidism [Recovering/Resolving]

NARRATIVE: CASE EVENT DATE: 20230701
